FAERS Safety Report 5070903-6 (Version None)
Quarter: 2006Q3

REPORT INFORMATION
  Report Type: 
  Country: None (occurrence: None)
  Receive Date: 20060804
  Receipt Date: 20060727
  Transmission Date: 20061208
  Serious: Yes (Hospitalization, Other)
  Sender: FDA-Public Use
  Company Number: DE-BAYER-200611002BVD

PATIENT
  Age: 66 Year
  Sex: Female
  Weight: 81 kg

DRUGS (14)
  1. SORAFENIB [Suspect]
     Indication: RENAL CELL CARCINOMA STAGE UNSPECIFIED
     Dosage: TOTAL DAILY DOSE: 800 MG
     Route: 048
     Dates: start: 20040329
  2. SIOFOR [Concomitant]
     Route: 048
     Dates: start: 20040301, end: 20060710
  3. ALLOPURINOL [Concomitant]
     Route: 048
     Dates: start: 20060522
  4. BISOBETA [Concomitant]
     Route: 065
     Dates: start: 20060202, end: 20060710
  5. RAMIPRIL [Concomitant]
     Route: 065
     Dates: start: 20040617
  6. TRILEPTAL [Concomitant]
     Route: 065
     Dates: start: 20040413
  7. EMBOLEX [Concomitant]
     Route: 065
     Dates: start: 20030101, end: 20060710
  8. NOVODIGAL [Concomitant]
     Route: 065
     Dates: start: 20030101
  9. TRANSTEC [Concomitant]
     Route: 065
     Dates: start: 20030101
  10. EMESAN [Concomitant]
     Route: 065
     Dates: start: 20060523, end: 20060710
  11. UNAT [Concomitant]
     Route: 065
     Dates: start: 20060711
  12. METFORMIN [Concomitant]
     Route: 065
     Dates: start: 20060711
  13. NEXIUM [Concomitant]
     Route: 065
     Dates: start: 20060711
  14. CONCOR [Concomitant]
     Route: 065
     Dates: start: 20060711

REACTIONS (10)
  - ABASIA [None]
  - ASCITES [None]
  - ATRIAL FIBRILLATION [None]
  - CARDIAC FAILURE [None]
  - COR PULMONALE [None]
  - HYPERTENSIVE HEART DISEASE [None]
  - HYPOKALAEMIA [None]
  - HYPONATRAEMIA [None]
  - PULMONARY HYPERTENSION [None]
  - TRICUSPID VALVE INCOMPETENCE [None]
